FAERS Safety Report 6810796-7 (Version None)
Quarter: 2010Q2

REPORT INFORMATION
  Report Type: 
  Country: None (occurrence: None)
  Receive Date: 20100630
  Receipt Date: 20080408
  Transmission Date: 20101027
  Serious: No
  Sender: FDA-Public Use
  Company Number: US-PFIZER INC-2008032101

PATIENT
  Sex: Female
  Weight: 49.09 kg

DRUGS (3)
  1. ESTRING [Suspect]
     Indication: MENOPAUSAL SYMPTOMS
     Route: 067
     Dates: start: 20050101, end: 20080407
  2. ALLERGY MEDICATION [Concomitant]
     Indication: HYPERSENSITIVITY
     Route: 048
  3. PROGESTERONE [Concomitant]
     Route: 048

REACTIONS (2)
  - ORAL SURGERY [None]
  - VULVOVAGINAL MYCOTIC INFECTION [None]
